FAERS Safety Report 7301817-6 (Version None)
Quarter: 2011Q1

REPORT INFORMATION
  Report Type: 
  Country: None (occurrence: None)
  Receive Date: 20110218
  Receipt Date: 20110215
  Transmission Date: 20110831
  Serious: Yes (Other)
  Sender: FDA-Public Use
  Company Number: B0700456A

PATIENT

DRUGS (1)
  1. CLAVAMOX [Suspect]
     Indication: OTITIS MEDIA
     Route: 048

REACTIONS (1)
  - JAUNDICE [None]
